FAERS Safety Report 6697229-9 (Version None)
Quarter: 2010Q2

REPORT INFORMATION
  Report Type: 
  Country: None (occurrence: None)
  Receive Date: 20100426
  Receipt Date: 20100422
  Transmission Date: 20101027
  Serious: Yes (Death)
  Sender: FDA-Public Use
  Company Number: FR-JNJFOC-20100306515

PATIENT
  Sex: Female
  Weight: 66 kg

DRUGS (4)
  1. RISPERDAL [Suspect]
     Indication: DELIRIUM
     Route: 048
  2. DEPAKENE [Suspect]
     Indication: AGITATION
     Route: 048
  3. VALIUM [Suspect]
     Indication: ANXIETY
     Route: 048
  4. TELFAST [Concomitant]
     Indication: HOUSE DUST ALLERGY
     Route: 065

REACTIONS (3)
  - OFF LABEL USE [None]
  - SEDATION [None]
  - SUDDEN DEATH [None]
